FAERS Safety Report 4344673-0 (Version None)
Quarter: 2004Q2

REPORT INFORMATION
  Report Type: 
  Country: None (occurrence: None)
  Receive Date: 20040419
  Receipt Date: 20040402
  Transmission Date: 20050107
  Serious: Yes (Hospitalization)
  Sender: FDA-Public Use
  Company Number: 195071

PATIENT
  Age: 26 Year
  Sex: Male

DRUGS (3)
  1. AVONEX [Suspect]
     Indication: MULTIPLE SCLEROSIS
     Dosage: 30 MCG QW IM
     Route: 030
     Dates: start: 20040401
  2. DITROPAN [Concomitant]
  3. OMIX [Concomitant]

REACTIONS (10)
  - ANXIETY [None]
  - DIFFICULTY IN WALKING [None]
  - DISEASE RECURRENCE [None]
  - EYE PAIN [None]
  - INFLUENZA LIKE ILLNESS [None]
  - MULTIPLE SCLEROSIS [None]
  - MYALGIA [None]
  - PHOTOSENSITIVITY REACTION [None]
  - VISION BLURRED [None]
  - VOMITING [None]
